FAERS Safety Report 4692653-8 (Version None)
Quarter: 2005Q2

REPORT INFORMATION
  Report Type: 
  Country: None (occurrence: None)
  Receive Date: 20050617
  Receipt Date: 20050203
  Transmission Date: 20051028
  Serious: Yes (Hospitalization, Disabling, Other)
  Sender: FDA-Public Use
  Company Number: US-MERCK-0502USA00478

PATIENT
  Age: 59 Year
  Sex: Male
  Weight: 85 kg

DRUGS (7)
  1. VIOXX [Suspect]
     Route: 048
     Dates: start: 19991203, end: 20000101
  2. VIOXX [Suspect]
     Route: 048
     Dates: start: 19991203, end: 20000101
  3. VIOXX [Suspect]
     Route: 048
     Dates: start: 19991203, end: 20000101
  4. PRILOSEC [Concomitant]
     Route: 065
  5. AMITRIPTYLINE HYDROCHLORIDE [Concomitant]
     Route: 065
  6. ASPIRIN [Concomitant]
     Route: 065
  7. PENTOXIFYLLINE [Concomitant]
     Route: 065

REACTIONS (15)
  - ACTINIC KERATOSIS [None]
  - ALOPECIA [None]
  - CEREBROVASCULAR ACCIDENT [None]
  - CHEST PAIN [None]
  - CORONARY ARTERY DISEASE [None]
  - DEPRESSION [None]
  - DYSPNOEA [None]
  - GASTRITIS [None]
  - ILIAC ARTERY THROMBOSIS [None]
  - JOINT SPRAIN [None]
  - MYOCARDIAL INFARCTION [None]
  - PERICARDITIS [None]
  - PERIPHERAL VASCULAR DISORDER [None]
  - POST-TRAUMATIC STRESS DISORDER [None]
  - PULMONARY HYPERTENSION [None]
